FAERS Safety Report 9548426 (Version 1)
Quarter: 2013Q2

REPORT INFORMATION
  Report Type: Spontaneous
  Country: US (occurrence: None)
  Receive Date: 20130627
  Receipt Date: 20130627
  Transmission Date: 20140414
  Serious: No
  Sender: FDA-Public Use
  Company Number: 1000044738

PATIENT
  Age: 67 Year
  Sex: Female

DRUGS (2)
  1. LINZESS (LINACLOTIDE) (CAPSULES) [Suspect]
     Route: 048
     Dates: start: 20130417
  2. SINEMET [Suspect]
     Indication: PARKINSON^S DISEASE
     Dates: start: 20130417

REACTIONS (1)
  - Potentiating drug interaction [None]
